FAERS Safety Report 5159685-7 (Version None)
Quarter: 2006Q4

REPORT INFORMATION
  Report Type: 
  Country: None (occurrence: None)
  Receive Date: 20061129
  Receipt Date: 20061122
  Transmission Date: 20070319
  Serious: Yes (Other)
  Sender: FDA-Public Use
  Company Number: BR-JNJFOC-20061105805

PATIENT
  Age: 56 Year
  Sex: Female
  Weight: 100 kg

DRUGS (9)
  1. TOPAMAX [Suspect]
     Indication: DRUG USE FOR UNKNOWN INDICATION
     Route: 048
  2. VENLAFAXIINE HCL [Concomitant]
     Indication: DEPRESSION
  3. CLORANOLOL [Concomitant]
     Indication: HYPERTENSION
  4. INSULIN [Concomitant]
     Indication: DIABETES MELLITUS
  5. RIVOTRIL [Concomitant]
     Indication: DEPRESSION
  6. PROPRANOLOL [Concomitant]
     Indication: HYPERTENSION
  7. NIFEDIPINE [Concomitant]
     Indication: HYPERTENSION
  8. ENALAPRIL MALEATE [Concomitant]
     Indication: HYPERTENSION
  9. ATENSINA [Concomitant]
     Indication: HYPERTENSION

REACTIONS (4)
  - DYSPNOEA [None]
  - FATIGUE [None]
  - MUSCLE CONTRACTIONS INVOLUNTARY [None]
  - TACHYCARDIA [None]
